FAERS Safety Report 9068846 (Version 1)
Quarter: 2013Q1

REPORT INFORMATION
  Report Type: Report from Study
  Country: US (occurrence: US)
  Receive Date: 20130128
  Receipt Date: 20130128
  Transmission Date: 20140127
  Serious: Yes (Hospitalization)
  Sender: FDA-Public Use
  Company Number: US-ACTELION-A-NJ2013-78186

PATIENT
  Age: 43 Year
  Sex: Female

DRUGS (2)
  1. VELETRI [Suspect]
     Indication: COR PULMONALE CHRONIC
     Dosage: 17 NG/KG, PER MIN
     Route: 041
  2. SILDENAFIL [Concomitant]

REACTIONS (2)
  - Urinary tract infection [Unknown]
  - Streptococcal infection [Unknown]
